FAERS Safety Report 7574779-4 (Version None)
Quarter: 2011Q2

REPORT INFORMATION
  Report Type: 
  Country: None (occurrence: None)
  Receive Date: 20110627
  Receipt Date: 20110624
  Transmission Date: 20111010
  Serious: No
  Sender: FDA-Public Use
  Company Number: US-PFIZER INC-2011141289

PATIENT
  Age: 63 Year
  Sex: Female
  Weight: 60.771 kg

DRUGS (9)
  1. LYRICA [Interacting]
     Indication: PARAESTHESIA
  2. LYRICA [Interacting]
     Indication: NEURALGIA
  3. CYMBALTA [Interacting]
     Indication: PAIN
     Dosage: 60 MG DAILY
     Route: 048
  4. LYRICA [Suspect]
     Indication: FIBROMYALGIA
     Dosage: 75 MG, 3X/DAY
     Route: 048
     Dates: start: 20110623
  5. LYRICA [Interacting]
     Indication: NEUROPATHY PERIPHERAL
  6. CYMBALTA [Interacting]
     Indication: POST-TRAUMATIC STRESS DISORDER
  7. ATIVAN [Interacting]
     Indication: POST-TRAUMATIC STRESS DISORDER
     Dosage: 1 MG, AS NEEDED
     Route: 048
  8. VICODIN [Interacting]
     Indication: PAIN
     Dosage: 5/500 MG TWO TIMES A DAY
     Route: 048
  9. PROVIGIL [Interacting]
     Indication: ASTHENIA
     Dosage: 100 MG, 2X/DAY
     Route: 048

REACTIONS (8)
  - FEELING DRUNK [None]
  - MUSCULOSKELETAL STIFFNESS [None]
  - VISION BLURRED [None]
  - DIZZINESS [None]
  - FEELING ABNORMAL [None]
  - IMPAIRED DRIVING ABILITY [None]
  - DRUG INTERACTION [None]
  - BALANCE DISORDER [None]
